FAERS Safety Report 4392804-9 (Version None)
Quarter: 2004Q3

REPORT INFORMATION
  Report Type: 
  Country: None (occurrence: None)
  Receive Date: 20040702
  Receipt Date: 20040622
  Transmission Date: 20050211
  Serious: No
  Sender: FDA-Public Use
  Company Number: 04P-008-0254417-00

PATIENT
  Age: 8 Week
  Sex: Female

DRUGS (1)
  1. FGF TABLETS (FERROUS SULFATE/FOLIC ACID) (FERROUS SULFATE/FOLIC ACID) [Suspect]
     Dates: end: 20040201

REACTIONS (11)
  - ABDOMINAL DISTENSION [None]
  - ABDOMINAL PAIN UPPER [None]
  - DIZZINESS [None]
  - DRUG EXPOSURE VIA BREAST MILK [None]
  - FLATULENCE [None]
  - HIGH-PITCHED CRYING [None]
  - LETHARGY [None]
  - MALAISE [None]
  - PETIT MAL EPILEPSY [None]
  - PYREXIA [None]
  - STARING [None]
